FAERS Safety Report 20541516 (Version 1)
Quarter: 2022Q1

REPORT INFORMATION
  Report Type: Spontaneous
  Country: FR (occurrence: FR)
  Receive Date: 20220302
  Receipt Date: 20220302
  Transmission Date: 20220423
  Serious: Yes (Other)
  Sender: FDA-Public Use
  Company Number: None

PATIENT
  Age: 30 Year
  Sex: Male

DRUGS (4)
  1. PREGABALIN [Suspect]
     Active Substance: PREGABALIN
     Dosage: 1800 MG, 1X/DAY
     Route: 048
     Dates: start: 2019
  2. COCAINE [Suspect]
     Active Substance: COCAINE
     Dosage: UNK, DAILY
  3. RIVOTRIL [Suspect]
     Active Substance: CLONAZEPAM
     Dosage: UNK, AT LEAST ONCE WEEKLY
     Route: 048
  4. DIAZEPAM [Suspect]
     Active Substance: DIAZEPAM
     Dosage: UNK, DAILY
     Route: 048

REACTIONS (2)
  - Drug dependence [Unknown]
  - Drug abuse [Unknown]

NARRATIVE: CASE EVENT DATE: 20190101
